FAERS Safety Report 8831850 (Version 1)
Quarter: 2012Q4

REPORT INFORMATION
  Report Type: 
  Country: IT (occurrence: IT)
  Receive Date: 20121009
  Receipt Date: 20121009
  Transmission Date: 20130627
  Serious: Yes (Hospitalization)
  Sender: FDA-Public Use
  Company Number: IT-ROCHE-1142427

PATIENT
  Age: 83 Year
  Sex: Male

DRUGS (8)
  1. RIVOTRIL [Suspect]
     Indication: EPILEPSY
     Route: 048
     Dates: start: 20120914, end: 20120914
  2. LANSOPRAZOLE [Concomitant]
  3. SEROQUEL [Concomitant]
  4. DINTOINA [Concomitant]
  5. DEPAKIN [Concomitant]
  6. RAMIPRIL [Concomitant]
  7. CARDIOASPIRIN [Concomitant]
  8. PROZIN [Concomitant]

REACTIONS (1)
  - Asthenia [Unknown]
